FAERS Safety Report 16225464 (Version 1)
Quarter: 2019Q2

REPORT INFORMATION
  Report Type: Report from Study
  Country: US (occurrence: US)
  Receive Date: 20190422
  Receipt Date: 20190422
  Transmission Date: 20190711
  Serious: Yes (Hospitalization)
  Sender: FDA-Public Use
  Company Number: US-GILEAD-2019-0403339

PATIENT
  Age: 21 Year
  Sex: Male

DRUGS (6)
  1. LEVEMIR [Concomitant]
     Active Substance: INSULIN DETEMIR
  2. BUPROPION. [Concomitant]
     Active Substance: BUPROPION
  3. DOXYCYCLINE. [Concomitant]
     Active Substance: DOXYCYCLINE
  4. NOVOLIN R [Concomitant]
     Active Substance: INSULIN HUMAN
  5. AZTREONAM LYSINE [Suspect]
     Active Substance: AZTREONAM LYSINE
     Indication: CYSTIC FIBROSIS
     Dosage: 75 MG, TID (28 DAYS ON, 28 DAYS OFF)
     Route: 055
     Dates: start: 20180920
  6. PULMOZYME [Concomitant]
     Active Substance: DORNASE ALFA
     Indication: CYSTIC FIBROSIS
     Dosage: 1 DOSAGE FORM, QD
     Route: 055
     Dates: start: 20180411

REACTIONS (1)
  - Cystic fibrosis respiratory infection suppression [Unknown]

NARRATIVE: CASE EVENT DATE: 20190402
